FAERS Safety Report 17040955 (Version 1)
Quarter: 2019Q4

REPORT INFORMATION
  Report Type: Spontaneous
  Country: GB (occurrence: GB)
  Receive Date: 20191118
  Receipt Date: 20191118
  Transmission Date: 20200122
  Serious: Yes (Other)
  Sender: FDA-Public Use
  Company Number: GB-TEVA-2019-GB-1137381

PATIENT
  Age: 63 Year
  Sex: Male
  Weight: 100 kg

DRUGS (5)
  1. PROPRANOLOL [Concomitant]
     Active Substance: PROPRANOLOL HYDROCHLORIDE
     Dosage: 1 DF/ DAY
     Dates: start: 20170426
  2. ATORVASTATIN [Concomitant]
     Active Substance: ATORVASTATIN
     Dosage: 1 DF/ DAY
     Dates: start: 20170426
  3. RAMIPRIL. [Suspect]
     Active Substance: RAMIPRIL
     Dosage: 1.25MG
     Route: 065
     Dates: start: 20171229
  4. METFORMIN [Concomitant]
     Active Substance: METFORMIN HYDROCHLORIDE
     Dosage: WITH MEALS, 3 DF/ DAY
     Dates: start: 20170614
  5. CO-DYDRAMOL [Concomitant]
     Active Substance: ACETAMINOPHEN\DIHYDROCODEINE
     Dosage: TAKE 1 OR 2 4 TIMES PER DAY.
     Dates: start: 20171120, end: 20171218

REACTIONS (2)
  - Vision blurred [Recovering/Resolving]
  - Hypoaesthesia eye [Recovering/Resolving]

NARRATIVE: CASE EVENT DATE: 20171229
